FAERS Safety Report 9364228 (Version 2)
Quarter: 2013Q2

REPORT INFORMATION
  Report Type: Spontaneous
  Country: US (occurrence: None)
  Receive Date: 20130619
  Receipt Date: 20130625
  Transmission Date: 20140414
  Serious: Yes (Hospitalization)
  Sender: FDA-Public Use
  Company Number: 2013P1008343

PATIENT
  Age: 83 Year
  Sex: Female

DRUGS (3)
  1. RILUTEK [Suspect]
     Indication: AMYOTROPHIC LATERAL SCLEROSIS
     Route: 048
     Dates: start: 20130525, end: 20130525
  2. THYROID MEDICATION [Concomitant]
  3. HMG-COA REDUCTASE INHIBITORS [Concomitant]

REACTIONS (1)
  - Haemorrhagic stroke [None]
